FAERS Safety Report 8383277-X (Version None)
Quarter: 2012Q2

REPORT INFORMATION
  Report Type: 
  Country: None (occurrence: None)
  Receive Date: 20120522
  Receipt Date: 20120511
  Transmission Date: 20120825
  Serious: Yes (Other)
  Sender: FDA-Public Use
  Company Number: DKLU1079539

PATIENT
  Age: 7 Year
  Sex: Male

DRUGS (4)
  1. SABRIL [Suspect]
     Indication: INFANTILE SPASMS
     Dosage: 750 MG MILLIGRAM(S), AM : 1000 MG MILLIGRAM(S), PM  : 200 MG MILLIGRAM(S), 2 IN 1 D, ORAL : AM : PM
     Route: 048
     Dates: start: 20100121
  2. SABRIL [Suspect]
     Indication: INFANTILE SPASMS
     Dosage: 750 MG MILLIGRAM(S), AM : 1000 MG MILLIGRAM(S), PM  : 200 MG MILLIGRAM(S), 2 IN 1 D, ORAL : AM : PM
     Route: 048
     Dates: start: 20100101
  3. SABRIL [Suspect]
     Indication: INFANTILE SPASMS
     Dosage: 750 MG MILLIGRAM(S), AM : 1000 MG MILLIGRAM(S), PM  : 200 MG MILLIGRAM(S), 2 IN 1 D, ORAL : AM : PM
     Route: 048
     Dates: start: 20100101
  4. LAMICTAL [Concomitant]

REACTIONS (1)
  - BLINDNESS [None]
